FAERS Safety Report 10990876 (Version 2)
Quarter: 2015Q2

REPORT INFORMATION
  Report Type: Report from Study
  Country: FR (occurrence: FR)
  Receive Date: 20150406
  Receipt Date: 20150407
  Transmission Date: 20150821
  Serious: Yes (Other)
  Sender: FDA-Public Use
  Company Number: FR-CELGENE-FRA-2015035481

PATIENT
  Age: 66 Year

DRUGS (1)
  1. REVLIMID [Suspect]
     Active Substance: LENALIDOMIDE
     Indication: MYELODYSPLASTIC SYNDROME
     Route: 048

REACTIONS (2)
  - Cardiovascular disorder [Unknown]
  - Diabetes mellitus [Unknown]
